FAERS Safety Report 14931935 (Version 4)
Quarter: 2023Q4

REPORT INFORMATION
  Report Type: Report from Study
  Country: US (occurrence: US)
  Receive Date: 20180524
  Receipt Date: 20231005
  Transmission Date: 20240110
  Serious: No
  Sender: FDA-Public Use
  Company Number: US-ACADIA PHARMACEUTICALS INC.-ACA-2018-007747

PATIENT
  Sex: Female

DRUGS (27)
  1. NUPLAZID [Suspect]
     Active Substance: PIMAVANSERIN TARTRATE
     Indication: Parkinson^s disease psychosis
     Dosage: 10 MILLIGRAM, TID
     Route: 048
  2. NUPLAZID [Suspect]
     Active Substance: PIMAVANSERIN TARTRATE
     Dosage: 20 MILLIGRAM, QD
     Route: 048
  3. NUPLAZID [Suspect]
     Active Substance: PIMAVANSERIN TARTRATE
     Dosage: UNK
     Route: 065
     Dates: start: 201702
  4. BOTOX [Concomitant]
     Active Substance: ONABOTULINUMTOXINA
  5. BACLOFEN [Concomitant]
     Active Substance: BACLOFEN
  6. MAGNESIUM [Concomitant]
     Active Substance: MAGNESIUM
  7. CYPROHEPTADINE [Concomitant]
     Active Substance: CYPROHEPTADINE
  8. RISPERIDONE [Concomitant]
     Active Substance: RISPERIDONE
  9. ZOLOFT [Concomitant]
     Active Substance: SERTRALINE HYDROCHLORIDE
  10. DEPAKOTE [Concomitant]
     Active Substance: DIVALPROEX SODIUM
  11. LAMICTAL [Concomitant]
     Active Substance: LAMOTRIGINE
  12. IMITREX [Concomitant]
     Active Substance: SUMATRIPTAN SUCCINATE
  13. SYMBICORT [Concomitant]
     Active Substance: BUDESONIDE\FORMOTEROL FUMARATE DIHYDRATE
  14. GABAPENTIN [Concomitant]
     Active Substance: GABAPENTIN
  15. TRAMADOL [Concomitant]
     Active Substance: TRAMADOL\TRAMADOL HYDROCHLORIDE
  16. ALBUTEROL [Concomitant]
     Active Substance: ALBUTEROL
  17. BETHANECHOL CHLORIDE [Concomitant]
     Active Substance: BETHANECHOL CHLORIDE
  18. PROBIOTICS NOS [Concomitant]
     Active Substance: PROBIOTICS NOS
  19. ZYRTEC [Concomitant]
     Active Substance: CETIRIZINE HYDROCHLORIDE
  20. CLONAZEPAM [Concomitant]
     Active Substance: CLONAZEPAM
  21. NUCYNTA [Concomitant]
     Active Substance: TAPENTADOL HYDROCHLORIDE
  22. DILAUDID [Concomitant]
     Active Substance: HYDROMORPHONE HYDROCHLORIDE
  23. UNSPECIFIED INGREDIENT [Concomitant]
     Active Substance: UNSPECIFIED INGREDIENT
  24. PAROXETINE [Concomitant]
     Active Substance: PAROXETINE
  25. ONDANSETRON [Concomitant]
     Active Substance: ONDANSETRON
  26. ZOMIG [Concomitant]
     Active Substance: ZOLMITRIPTAN
  27. BUTALBITAL, ACETAMINOPHEN, AND CAFFEINE [Concomitant]
     Active Substance: ACETAMINOPHEN\BUTALBITAL\CAFFEINE

REACTIONS (6)
  - Headache [Unknown]
  - Ill-defined disorder [Not Recovered/Not Resolved]
  - COVID-19 [Recovering/Resolving]
  - Migraine [Unknown]
  - Illness [Unknown]
  - Inappropriate schedule of product administration [Not Recovered/Not Resolved]
